FAERS Safety Report 9916917 (Version 1)
Quarter: 2014Q1

REPORT INFORMATION
  Report Type: Spontaneous
  Country: US (occurrence: US)
  Receive Date: 20140221
  Receipt Date: 20140221
  Transmission Date: 20141002
  Serious: Yes (Hospitalization)
  Sender: FDA-Public Use
  Company Number: US-BIOMARINAP-US-2014-102545

PATIENT
  Age: 24 Year
  Sex: Female

DRUGS (1)
  1. KUVAN [Suspect]
     Indication: PHENYLKETONURIA
     Dosage: 20 MG/KG, QD
     Route: 048
     Dates: start: 20121107

REACTIONS (3)
  - Nephrolithiasis [Recovering/Resolving]
  - Ureteric obstruction [Recovering/Resolving]
  - Kidney infection [Recovering/Resolving]
